FAERS Safety Report 7249838-6 (Version None)
Quarter: 2011Q1

REPORT INFORMATION
  Report Type: 
  Country: None (occurrence: None)
  Receive Date: 20110128
  Receipt Date: 20100526
  Transmission Date: 20110831
  Serious: No
  Sender: FDA-Public Use
  Company Number: A0862627A

PATIENT
  Sex: Male

DRUGS (3)
  1. BUSPAR [Concomitant]
     Indication: ANXIETY
  2. ZOLOFT [Suspect]
     Route: 065
  3. WELLBUTRIN [Suspect]
     Route: 065

REACTIONS (2)
  - ATTENTION DEFICIT/HYPERACTIVITY DISORDER [None]
  - CONSTIPATION [None]
